FAERS Safety Report 4802633-7 (Version None)
Quarter: 2005Q4

REPORT INFORMATION
  Report Type: 
  Country: None (occurrence: None)
  Receive Date: 20051014
  Receipt Date: 20050525
  Transmission Date: 20060501
  Serious: Yes (Other)
  Sender: FDA-Public Use
  Company Number: 2005067404

PATIENT
  Age: 55 Year
  Sex: Female
  Weight: 77.1115 kg

DRUGS (9)
  1. NEURONTIN [Suspect]
     Indication: BACK PAIN
     Dosage: 900 MG (300 MG, 3 IN 1 D)
     Dates: start: 20040101
  2. NEURONTIN [Suspect]
     Indication: ILL-DEFINED DISORDER
     Dosage: 900 MG (300 MG, 3 IN 1 D)
     Dates: start: 20040101
  3. FLEXERIL [Concomitant]
  4. IBUPROFEN [Concomitant]
  5. VICODIN (HYDROCODONE BITARTYRATE, PARACETAMOL) [Concomitant]
  6. DARVOCET [Concomitant]
  7. ATENOLOL [Concomitant]
  8. QUINAPRIL [Concomitant]
  9. HYDROCHLOROTHIAZIDE [Concomitant]

REACTIONS (3)
  - CATARACT [None]
  - PAIN [None]
  - VISION BLURRED [None]
